FAERS Safety Report 14790869 (Version 2)
Quarter: 2024Q4

REPORT INFORMATION
  Report Type: Report from Study
  Country: CA (occurrence: CA)
  Receive Date: 20180423
  Receipt Date: 20241111
  Transmission Date: 20250114
  Serious: Yes (Hospitalization, Other)
  Sender: JOHNSON AND JOHNSON
  Company Number: CA-JNJFOC-20180312800

PATIENT
  Age: 53 Year
  Sex: Male

DRUGS (10)
  1. STELARA [Suspect]
     Active Substance: USTEKINUMAB
     Indication: Crohn^s disease
     Dosage: STRENGTH = 90 MG? THERAPY DATE (ALSO REPORTED AS 27-MAY-2017)
     Route: 058
     Dates: start: 20170518
  2. STELARA [Suspect]
     Active Substance: USTEKINUMAB
     Dosage: STRENGTH = 90 MG
     Route: 058
     Dates: start: 20170518
  3. STELARA [Suspect]
     Active Substance: USTEKINUMAB
     Dosage: STRENGTH = 90 MG
     Route: 058
     Dates: start: 20170518
  4. STELARA [Suspect]
     Active Substance: USTEKINUMAB
     Dosage: STRENGTH = 90 MG
     Route: 058
     Dates: start: 20170518
  5. STELARA [Suspect]
     Active Substance: USTEKINUMAB
     Route: 058
  6. PREGABALIN [Suspect]
     Active Substance: PREGABALIN
     Indication: Product used for unknown indication
     Route: 065
  7. AMITRIPTYLINE [Suspect]
     Active Substance: AMITRIPTYLINE
     Indication: Product used for unknown indication
     Route: 065
  8. CODEINE [Concomitant]
     Active Substance: CODEINE
  9. LOPERAMIDE HYDROCHLORIDE [Concomitant]
     Active Substance: LOPERAMIDE HYDROCHLORIDE
  10. LOPERAMIDE [Concomitant]
     Active Substance: LOPERAMIDE

REACTIONS (14)
  - Postoperative abscess [Not Recovered/Not Resolved]
  - Crohn^s disease [Recovering/Resolving]
  - Post procedural fistula [Unknown]
  - Surgery [Unknown]
  - Abscess [Recovering/Resolving]
  - Intestinal perforation [Unknown]
  - Intestinal fistula [Unknown]
  - Gastrointestinal stoma complication [Unknown]
  - Impaired healing [Unknown]
  - Memory impairment [Recovering/Resolving]
  - Nerve injury [Unknown]
  - Syringe issue [Unknown]
  - Product leakage [Unknown]
  - Drug ineffective [Unknown]

NARRATIVE: CASE EVENT DATE: 20180101
